FAERS Safety Report 10340708 (Version 2)
Quarter: 2014Q3

REPORT INFORMATION
  Report Type: Spontaneous
  Country: US (occurrence: US)
  Receive Date: 20140724
  Receipt Date: 20140724
  Transmission Date: 20150326
  Serious: No
  Sender: FDA-Public Use
  Company Number: US-PFIZER INC-2014184539

PATIENT
  Age: 58 Year
  Sex: Female
  Weight: 54.42 kg

DRUGS (2)
  1. LYRICA [Suspect]
     Active Substance: PREGABALIN
     Indication: PAIN
  2. LYRICA [Suspect]
     Active Substance: PREGABALIN
     Indication: TRIGEMINAL NEURALGIA
     Dosage: 75 MG, 1X/DAY
     Route: 048
     Dates: start: 2011, end: 201403

REACTIONS (5)
  - Nausea [Unknown]
  - Somnolence [Unknown]
  - Headache [Unknown]
  - Drug ineffective [Unknown]
  - Confusional state [Unknown]
